FAERS Safety Report 8931247 (Version 1)
Quarter: 2012Q4

REPORT INFORMATION
  Report Type: 
  Country: US (occurrence: US)
  Receive Date: 20121128
  Receipt Date: 20121128
  Transmission Date: 20130627
  Serious: No
  Sender: FDA-Public Use
  Company Number: US-COVIDIEN/TYCO HEALTHCARE/MALLINCKRODT-T201202632

PATIENT
  Age: 34 Year
  Sex: Female

DRUGS (2)
  1. TECHNESCAN HDP [Suspect]
     Indication: RADIOISOTOPE SCAN
     Dosage: UNK UNK, single
     Dates: start: 20120615, end: 20120615
  2. ULTRA-TECHNEKOW DTE GENERATOR [Suspect]
     Indication: RADIOISOTOPE SCAN
     Dosage: 22.9 mCi, single
     Dates: start: 20120615, end: 20120615

REACTIONS (1)
  - Exposure during pregnancy [Unknown]
